FAERS Safety Report 8900678 (Version 5)
Quarter: 2013Q3

REPORT INFORMATION
  Report Type: Report from Study
  Country: NL (occurrence: NL)
  Receive Date: 20121109
  Receipt Date: 20130724
  Transmission Date: 20140515
  Serious: Yes (Death, Other)
  Sender: FDA-Public Use
  Company Number: NL-GENZYME-CLOF-1002386

PATIENT
  Age: 55 Year
  Sex: Male

DRUGS (7)
  1. EVOLTRA [Suspect]
     Indication: ACUTE MYELOID LEUKAEMIA
     Dosage: 21 MG, UNK( Q 48 HRS) (REMISSION INDUCTION ON D2, D4, D6, D8, D10)
     Route: 042
     Dates: start: 20120609, end: 20120613
  2. CYTARABINE [Suspect]
     Indication: ACUTE MYELOID LEUKAEMIA
     Dosage: 200 MG, QD (REMISSION INDUCTION: D1 TO D10)
     Route: 042
     Dates: start: 20120608, end: 20120617
  3. CYTARABINE [Suspect]
     Dosage: 1000 MG, Q12HR (CONSOLIDATION: D1 TO D6)
     Route: 042
     Dates: start: 20120724, end: 20120730
  4. IDARUBICIN [Suspect]
     Indication: ACUTE MYELOID LEUKAEMIA
     Dosage: 21 MG, UNK (Q 48 HRS) (REMISSION INDUCTION ON D1, D3, D5)
     Route: 042
     Dates: start: 20120608, end: 20120612
  5. IDARUBICIN [Suspect]
     Dosage: 21 MG, QD (CONSOLIDATION: ON D4, D5 AND D6)
     Route: 042
     Dates: start: 20120727, end: 20120729
  6. IDARUBICIN [Suspect]
     Dosage: UNK
     Route: 042
     Dates: start: 20121005
  7. CYCLOPHOSPHAMIDE [Suspect]
     Indication: PRODUCT USED FOR UNKNOWN INDICATION
     Dosage: 4800 MG, QD
     Route: 042
     Dates: start: 20121011, end: 20121013

REACTIONS (3)
  - Multi-organ failure [Fatal]
  - Venoocclusive disease [Fatal]
  - Pleural effusion [Not Recovered/Not Resolved]
